FAERS Safety Report 10678964 (Version 1)
Quarter: 2014Q4

REPORT INFORMATION
  Report Type: Other
  Country: JP (occurrence: JP)
  Receive Date: 20141229
  Receipt Date: 20141229
  Transmission Date: 20150529
  Serious: Yes (Hospitalization, Other)
  Sender: FDA-Public Use
  Company Number: JP-ACTELION-A-CH2014-110088

PATIENT
  Sex: Female

DRUGS (3)
  1. BETAMETHASONE [Concomitant]
     Active Substance: BETAMETHASONE
     Dosage: 0.5 MG, QOD
     Route: 048
  2. TRACLEER [Suspect]
     Active Substance: BOSENTAN\BOSENTAN MONOHYDRATE
     Indication: PULMONARY ARTERIAL HYPERTENSION
     Dosage: UNK
     Route: 048
     Dates: start: 200704
  3. BERAPROST [Concomitant]
     Active Substance: BERAPROST
     Dosage: UNK
     Dates: start: 200905

REACTIONS (9)
  - Hypoproteinaemia [Recovering/Resolving]
  - Protein-losing gastroenteropathy [Recovering/Resolving]
  - Lupus nephritis [Unknown]
  - Double stranded DNA antibody positive [Unknown]
  - Blood albumin decreased [Recovering/Resolving]
  - Proteinuria [Unknown]
  - Erythema [Unknown]
  - Oedema [Recovering/Resolving]
  - Biopsy kidney [Recovered/Resolved]

NARRATIVE: CASE EVENT DATE: 200903
